FAERS Safety Report 5246199-9 (Version None)
Quarter: 2007Q1

REPORT INFORMATION
  Report Type: 
  Country: None (occurrence: None)
  Receive Date: 20070220
  Receipt Date: 20070208
  Transmission Date: 20070707
  Serious: Yes (Other)
  Sender: FDA-Public Use
  Company Number: 2006EU002874

PATIENT
  Age: 51 Year
  Sex: Female

DRUGS (11)
  1. VESITIRIM(SOLIFENACIN) TABLET, 5MG [Suspect]
     Indication: NEUROGENIC BLADDER
     Dosage: 5 MG, UID/QD, ORAL
     Route: 048
     Dates: start: 20060824, end: 20061201
  2. LIVIAL [Concomitant]
  3. MIRTAZAPINE [Concomitant]
  4. BACLOFEN [Concomitant]
  5. KEMADRIN [Concomitant]
  6. ASPIRIN [Concomitant]
  7. DICLOFENAC (DICLOFENAC POTASSIUM) [Concomitant]
  8. NEUROSTIL (GABAPENTIN) [Concomitant]
  9. FUROSEMIDE [Concomitant]
  10. MAXIDEX [Concomitant]
  11. SLOW-K [Concomitant]

REACTIONS (1)
  - LIVER FUNCTION TEST ABNORMAL [None]
